FAERS Safety Report 6728062-7 (Version None)
Quarter: 2010Q2

REPORT INFORMATION
  Report Type: 
  Country: None (occurrence: None)
  Receive Date: 20100517
  Receipt Date: 20100506
  Transmission Date: 20101027
  Serious: Yes (Hospitalization, Other)
  Sender: FDA-Public Use
  Company Number: US-ROCHE-699329

PATIENT
  Sex: Female
  Weight: 77.1 kg

DRUGS (4)
  1. CAPECITABINE [Suspect]
     Dosage: FREQUENCY: 2000 MG (4 TABS) IN MORNING AND 1500 MG (3 TABS) IN EVENING
     Route: 048
     Dates: start: 20100222, end: 20100329
  2. AVASTIN [Concomitant]
     Indication: BREAST CANCER STAGE IV
     Route: 042
     Dates: start: 20100211
  3. COUMADIN [Concomitant]
     Dosage: DOSE: 1.25 AND 2.5 ALTERNATE
     Route: 048
  4. LOVASTATIN [Concomitant]
     Route: 048

REACTIONS (5)
  - FLANK PAIN [None]
  - HAEMATURIA [None]
  - HYDRONEPHROSIS [None]
  - PYELONEPHRITIS [None]
  - URINARY TRACT INFECTION [None]
